FAERS Safety Report 17896534 (Version 1)
Quarter: 2020Q2

REPORT INFORMATION
  Report Type: Spontaneous
  Country: ES (occurrence: ES)
  Receive Date: 20200615
  Receipt Date: 20200615
  Transmission Date: 20200714
  Serious: Yes (Life-Threatening, Hospitalization)
  Sender: FDA-Public Use
  Company Number: NVSC2020ES166420

PATIENT
  Age: 54 Year
  Sex: Female

DRUGS (8)
  1. CLONAZEPAM. [Interacting]
     Active Substance: CLONAZEPAM
     Indication: SUICIDE ATTEMPT
     Dosage: 48 MG, TOTAL
     Route: 048
     Dates: start: 20200303, end: 20200303
  2. BUPROPION HYDROCHLORIDE. [Suspect]
     Active Substance: BUPROPION HYDROCHLORIDE
     Indication: SUICIDE ATTEMPT
     Dosage: 1800 MG, TOTAL
     Route: 048
     Dates: start: 20200303, end: 20200303
  3. QUETIAPINE. [Interacting]
     Active Substance: QUETIAPINE
     Indication: SUICIDE ATTEMPT
     Dosage: 7200 MG, TOTAL
     Route: 048
     Dates: start: 20200303, end: 20200303
  4. DIAZEPAM. [Interacting]
     Active Substance: DIAZEPAM
     Indication: PRODUCT USED FOR UNKNOWN INDICATION
     Dosage: 60 MG, TOTAL
     Route: 048
     Dates: start: 20200303, end: 20200303
  5. CLOTIAPINE [Interacting]
     Active Substance: CLOTHIAPINE
     Indication: SUICIDE ATTEMPT
     Dosage: 240 MG, TOTAL
     Route: 048
     Dates: start: 20200303, end: 20200303
  6. GABAPENTIN. [Interacting]
     Active Substance: GABAPENTIN
     Indication: SUICIDE ATTEMPT
     Dosage: 4050 MG, TOTAL
     Route: 048
     Dates: start: 20200303, end: 20200303
  7. PROPRANOLOL [Interacting]
     Active Substance: PROPRANOLOL HYDROCHLORIDE
     Indication: SUICIDE ATTEMPT
     Dosage: 720 MG, TOTAL
     Route: 048
     Dates: start: 20200303, end: 20200303
  8. ZONISAMIDE. [Interacting]
     Active Substance: ZONISAMIDE
     Indication: SUICIDE ATTEMPT
     Dosage: 600 MG, EVERY
     Route: 048
     Dates: start: 20200303, end: 20200303

REACTIONS (1)
  - Coma [Recovered/Resolved]

NARRATIVE: CASE EVENT DATE: 20200303
